FAERS Safety Report 5731628-4 (Version None)
Quarter: 2008Q2

REPORT INFORMATION
  Report Type: 
  Country: None (occurrence: None)
  Receive Date: 20080508
  Receipt Date: 20080428
  Transmission Date: 20081010
  Serious: Yes (Other)
  Sender: FDA-Public Use
  Company Number: PHHY2008GT06649

PATIENT
  Sex: Male

DRUGS (11)
  1. GENTEAL (NVO) [Suspect]
     Indication: DRY EYE
     Dosage: TWO DROPS PER DAY
     Dates: start: 20080325
  2. NPH ILETIN II [Concomitant]
     Dosage: 25 UNIT/DAY
     Route: 058
  3. METFORMIN HCL [Concomitant]
     Dosage: 500 MG PER DAY
     Route: 048
  4. LYRICA [Concomitant]
     Dosage: 75 MG, BID
     Route: 048
  5. DICLOFENAC [Concomitant]
     Dosage: 50 MG, Q12H
     Route: 048
  6. VASTAREL [Concomitant]
     Dosage: 1 TABLET, Q12H
     Route: 048
  7. CAPOTEN [Concomitant]
     Dosage: 12.5 MG, TID
     Route: 048
  8. MEDOCOR [Concomitant]
     Dosage: 20 MG, Q12H
     Route: 048
  9. ZOCOR [Concomitant]
     Dosage: 2.5 MG
     Route: 048
  10. LEVOFLOXACIN [Concomitant]
     Dosage: 500 MG PER DAY
     Route: 048
  11. HITRIN [Concomitant]

REACTIONS (2)
  - CREPITATIONS [None]
  - EXTRASYSTOLES [None]
